FAERS Safety Report 10049498 (Version 1)
Quarter: 2014Q1

REPORT INFORMATION
  Report Type: Spontaneous
  Country: US (occurrence: None)
  Receive Date: 20140331
  Receipt Date: 20140331
  Transmission Date: 20141002
  Serious: Yes (Death, Life-Threatening)
  Sender: FDA-Public Use
  Company Number: None

PATIENT
  Age: 58 Year
  Sex: Male

DRUGS (2)
  1. DEPAKOTE [Suspect]
     Indication: BIPOLAR DISORDER
     Dates: start: 20131028, end: 20131129
  2. DEPAKOTE [Suspect]
     Indication: SEIZURE LIKE PHENOMENA
     Dates: start: 20131028, end: 20131129

REACTIONS (1)
  - Death [None]
